FAERS Safety Report 25524129 (Version 1)
Quarter: 2025Q3

REPORT INFORMATION
  Report Type: Spontaneous
  Country: US (occurrence: US)
  Receive Date: 20250707
  Receipt Date: 20250707
  Transmission Date: 20251020
  Serious: No
  Sender: ROCHE
  Company Number: US-ROCHE-10000321012

PATIENT
  Age: 50 Year
  Sex: Female

DRUGS (1)
  1. XOLAIR [Suspect]
     Active Substance: OMALIZUMAB
     Indication: Urticaria
     Route: 058

REACTIONS (3)
  - Product quality issue [Unknown]
  - No adverse event [Unknown]
  - Device leakage [Unknown]

NARRATIVE: CASE EVENT DATE: 20250619
